FAERS Safety Report 17291551 (Version 1)
Quarter: 2020Q1

REPORT INFORMATION
  Report Type: Spontaneous
  Country: US (occurrence: US)
  Receive Date: 20200117
  Receipt Date: 20200117
  Transmission Date: 20200409
  Serious: No
  Sender: FDA-Public Use
  Company Number: None

PATIENT
  Age: 36 Year
  Sex: Female
  Weight: 70.2 kg

DRUGS (1)
  1. ELURYNG [Suspect]
     Active Substance: ETHINYL ESTRADIOL\ETONOGESTREL
     Indication: DYSMENORRHOEA
     Dates: start: 20200112, end: 20200116

REACTIONS (6)
  - Headache [None]
  - Weight increased [None]
  - Rash [None]
  - Fatigue [None]
  - Peripheral swelling [None]
  - Disturbance in attention [None]

NARRATIVE: CASE EVENT DATE: 20200113
